FAERS Safety Report 24771276 (Version 2)
Quarter: 2025Q2

REPORT INFORMATION
  Report Type: Report from Study
  Country: JP (occurrence: JP)
  Receive Date: 20241224
  Receipt Date: 20250623
  Transmission Date: 20250717
  Serious: Yes (Life-Threatening, Hospitalization, Other)
  Sender: CSL BEHRING
  Company Number: JP-BEH-2024188671

PATIENT
  Age: 25 Year
  Sex: Female
  Weight: 42 kg

DRUGS (90)
  1. BERINERT [Suspect]
     Active Substance: HUMAN C1-ESTERASE INHIBITOR
     Indication: Hereditary angioedema
     Route: 058
     Dates: start: 20230901, end: 20231107
  2. BERINERT [Suspect]
     Active Substance: HUMAN C1-ESTERASE INHIBITOR
     Indication: Prophylaxis
     Route: 058
     Dates: start: 20231109, end: 20231110
  3. BERINERT [Suspect]
     Active Substance: HUMAN C1-ESTERASE INHIBITOR
     Indication: Vulvovaginal pain
     Route: 058
     Dates: start: 20231116
  4. BERINERT [Suspect]
     Active Substance: HUMAN C1-ESTERASE INHIBITOR
     Indication: Glossodynia
  5. BERINERT [Suspect]
     Active Substance: HUMAN C1-ESTERASE INHIBITOR
     Indication: Hereditary angioedema
     Route: 042
  6. BERINERT [Suspect]
     Active Substance: HUMAN C1-ESTERASE INHIBITOR
     Indication: Hereditary angioedema
     Route: 042
  7. BERINERT [Suspect]
     Active Substance: HUMAN C1-ESTERASE INHIBITOR
     Indication: Prophylaxis
  8. BERINERT [Suspect]
     Active Substance: HUMAN C1-ESTERASE INHIBITOR
     Indication: Prophylaxis
  9. BERINERT [Suspect]
     Active Substance: HUMAN C1-ESTERASE INHIBITOR
     Indication: Swollen tongue
  10. BERINERT [Suspect]
     Active Substance: HUMAN C1-ESTERASE INHIBITOR
     Indication: Swollen tongue
  11. BERINERT [Suspect]
     Active Substance: HUMAN C1-ESTERASE INHIBITOR
     Indication: Urinary retention
  12. BERINERT [Suspect]
     Active Substance: HUMAN C1-ESTERASE INHIBITOR
     Indication: Urinary retention
  13. BERINERT [Suspect]
     Active Substance: HUMAN C1-ESTERASE INHIBITOR
     Indication: Dysphonia
  14. BERINERT [Suspect]
     Active Substance: HUMAN C1-ESTERASE INHIBITOR
     Indication: Dysphonia
  15. BERINERT [Suspect]
     Active Substance: HUMAN C1-ESTERASE INHIBITOR
     Indication: Eyelid oedema
  16. BERINERT [Suspect]
     Active Substance: HUMAN C1-ESTERASE INHIBITOR
     Indication: Eyelid oedema
  17. BERINERT [Suspect]
     Active Substance: HUMAN C1-ESTERASE INHIBITOR
     Indication: Lip oedema
  18. BERINERT [Suspect]
     Active Substance: HUMAN C1-ESTERASE INHIBITOR
     Indication: Lip oedema
  19. BERINERT [Suspect]
     Active Substance: HUMAN C1-ESTERASE INHIBITOR
     Indication: Tongue oedema
  20. BERINERT [Suspect]
     Active Substance: HUMAN C1-ESTERASE INHIBITOR
     Indication: Tongue oedema
  21. BERINERT [Suspect]
     Active Substance: HUMAN C1-ESTERASE INHIBITOR
     Indication: Lip swelling
  22. BERINERT [Suspect]
     Active Substance: HUMAN C1-ESTERASE INHIBITOR
     Indication: Lip swelling
  23. BERINERT [Suspect]
     Active Substance: HUMAN C1-ESTERASE INHIBITOR
     Indication: Cough
  24. BERINERT [Suspect]
     Active Substance: HUMAN C1-ESTERASE INHIBITOR
     Indication: Cough
  25. BERINERT [Suspect]
     Active Substance: HUMAN C1-ESTERASE INHIBITOR
     Indication: Abdominal distension
  26. BERINERT [Suspect]
     Active Substance: HUMAN C1-ESTERASE INHIBITOR
     Indication: Abdominal distension
  27. BERINERT [Suspect]
     Active Substance: HUMAN C1-ESTERASE INHIBITOR
     Indication: Oropharyngeal pain
  28. BERINERT [Suspect]
     Active Substance: HUMAN C1-ESTERASE INHIBITOR
     Indication: Oropharyngeal pain
  29. BERINERT [Suspect]
     Active Substance: HUMAN C1-ESTERASE INHIBITOR
     Indication: Swelling of eyelid
  30. BERINERT [Suspect]
     Active Substance: HUMAN C1-ESTERASE INHIBITOR
     Indication: Swelling of eyelid
  31. BERINERT [Suspect]
     Active Substance: HUMAN C1-ESTERASE INHIBITOR
     Indication: Vulvovaginal pain
  32. BERINERT [Suspect]
     Active Substance: HUMAN C1-ESTERASE INHIBITOR
     Indication: Vulvovaginal pain
  33. BERINERT [Suspect]
     Active Substance: HUMAN C1-ESTERASE INHIBITOR
     Indication: Paraesthesia oral
  34. BERINERT [Suspect]
     Active Substance: HUMAN C1-ESTERASE INHIBITOR
     Indication: Paraesthesia oral
  35. BERINERT [Suspect]
     Active Substance: HUMAN C1-ESTERASE INHIBITOR
     Indication: Vulvovaginal swelling
  36. BERINERT [Suspect]
     Active Substance: HUMAN C1-ESTERASE INHIBITOR
     Indication: Vulvovaginal swelling
  37. BERINERT [Suspect]
     Active Substance: HUMAN C1-ESTERASE INHIBITOR
     Indication: Glossodynia
  38. BERINERT [Suspect]
     Active Substance: HUMAN C1-ESTERASE INHIBITOR
     Indication: Glossodynia
  39. FIRAZYR [Concomitant]
     Active Substance: ICATIBANT ACETATE
     Indication: Hereditary angioedema
     Route: 058
  40. FIRAZYR [Concomitant]
     Active Substance: ICATIBANT ACETATE
     Indication: Prophylaxis
  41. FIRAZYR [Concomitant]
     Active Substance: ICATIBANT ACETATE
     Indication: Swollen tongue
  42. FIRAZYR [Concomitant]
     Active Substance: ICATIBANT ACETATE
     Indication: Lip swelling
  43. FIRAZYR [Concomitant]
     Active Substance: ICATIBANT ACETATE
     Indication: Urinary retention
  44. FIRAZYR [Concomitant]
     Active Substance: ICATIBANT ACETATE
     Indication: Dysphonia
  45. FIRAZYR [Concomitant]
     Active Substance: ICATIBANT ACETATE
     Indication: Eyelid oedema
  46. FIRAZYR [Concomitant]
     Active Substance: ICATIBANT ACETATE
     Indication: Lip oedema
  47. FIRAZYR [Concomitant]
     Active Substance: ICATIBANT ACETATE
     Indication: Tongue oedema
  48. FIRAZYR [Concomitant]
     Active Substance: ICATIBANT ACETATE
     Indication: Lip swelling
  49. FIRAZYR [Concomitant]
     Active Substance: ICATIBANT ACETATE
     Indication: Cough
  50. FIRAZYR [Concomitant]
     Active Substance: ICATIBANT ACETATE
     Indication: Abdominal distension
  51. FIRAZYR [Concomitant]
     Active Substance: ICATIBANT ACETATE
     Indication: Oropharyngeal pain
  52. FIRAZYR [Concomitant]
     Active Substance: ICATIBANT ACETATE
     Indication: Swelling of eyelid
  53. FIRAZYR [Concomitant]
     Active Substance: ICATIBANT ACETATE
     Indication: Vulvovaginal pain
  54. FIRAZYR [Concomitant]
     Active Substance: ICATIBANT ACETATE
     Indication: Glossodynia
  55. FIRAZYR [Concomitant]
     Active Substance: ICATIBANT ACETATE
     Indication: Paraesthesia oral
  56. FIRAZYR [Concomitant]
     Active Substance: ICATIBANT ACETATE
     Indication: Vulvovaginal swelling
  57. FIRAZYR [Concomitant]
     Active Substance: ICATIBANT ACETATE
     Indication: Glossodynia
  58. TRANEXAMIC ACID [Concomitant]
     Active Substance: TRANEXAMIC ACID
     Indication: Hereditary angioedema
     Route: 048
  59. TRANEXAMIC ACID [Concomitant]
     Active Substance: TRANEXAMIC ACID
     Indication: Prophylaxis
  60. ORLADEYO [Concomitant]
     Active Substance: BEROTRALSTAT HYDROCHLORIDE
     Indication: Hereditary angioedema
     Route: 048
  61. ORLADEYO [Concomitant]
     Active Substance: BEROTRALSTAT HYDROCHLORIDE
     Indication: Prophylaxis
  62. TRANSAMIN [Concomitant]
     Active Substance: TRANEXAMIC ACID
     Indication: Hereditary angioedema
     Route: 041
  63. TRANSAMIN [Concomitant]
     Active Substance: TRANEXAMIC ACID
     Indication: Prophylaxis
  64. TRANSAMIN [Concomitant]
     Active Substance: TRANEXAMIC ACID
     Indication: Swollen tongue
  65. TRANSAMIN [Concomitant]
     Active Substance: TRANEXAMIC ACID
     Indication: Urinary retention
  66. TRANSAMIN [Concomitant]
     Active Substance: TRANEXAMIC ACID
     Indication: Dysphonia
  67. TRANSAMIN [Concomitant]
     Active Substance: TRANEXAMIC ACID
     Indication: Eyelid oedema
  68. TRANSAMIN [Concomitant]
     Active Substance: TRANEXAMIC ACID
     Indication: Lip oedema
  69. TRANSAMIN [Concomitant]
     Active Substance: TRANEXAMIC ACID
     Indication: Tongue oedema
  70. TRANSAMIN [Concomitant]
     Active Substance: TRANEXAMIC ACID
     Indication: Lip swelling
  71. TRANSAMIN [Concomitant]
     Active Substance: TRANEXAMIC ACID
     Indication: Cough
  72. TRANSAMIN [Concomitant]
     Active Substance: TRANEXAMIC ACID
     Indication: Abdominal distension
  73. TRANSAMIN [Concomitant]
     Active Substance: TRANEXAMIC ACID
     Indication: Oropharyngeal pain
  74. TRANSAMIN [Concomitant]
     Active Substance: TRANEXAMIC ACID
     Indication: Swelling of eyelid
  75. TRANSAMIN [Concomitant]
     Active Substance: TRANEXAMIC ACID
     Indication: Vulvovaginal swelling
  76. EPINEPHRINE [Concomitant]
     Active Substance: EPINEPHRINE
     Indication: Hereditary angioedema
     Route: 030
  77. EPINEPHRINE [Concomitant]
     Active Substance: EPINEPHRINE
     Indication: Prophylaxis
  78. EPINEPHRINE [Concomitant]
     Active Substance: EPINEPHRINE
     Indication: Swollen tongue
  79. EPINEPHRINE [Concomitant]
     Active Substance: EPINEPHRINE
     Indication: Urinary retention
  80. EPINEPHRINE [Concomitant]
     Active Substance: EPINEPHRINE
     Indication: Dysphonia
  81. EPINEPHRINE [Concomitant]
     Active Substance: EPINEPHRINE
     Indication: Eyelid oedema
  82. EPINEPHRINE [Concomitant]
     Active Substance: EPINEPHRINE
     Indication: Lip oedema
  83. EPINEPHRINE [Concomitant]
     Active Substance: EPINEPHRINE
     Indication: Tongue oedema
  84. EPINEPHRINE [Concomitant]
     Active Substance: EPINEPHRINE
     Indication: Lip swelling
  85. EPINEPHRINE [Concomitant]
     Active Substance: EPINEPHRINE
     Indication: Cough
  86. EPINEPHRINE [Concomitant]
     Active Substance: EPINEPHRINE
     Indication: Abdominal distension
  87. EPINEPHRINE [Concomitant]
     Active Substance: EPINEPHRINE
     Indication: Oropharyngeal pain
  88. EPINEPHRINE [Concomitant]
     Active Substance: EPINEPHRINE
     Indication: Vulvovaginal swelling
  89. TAKHZYRO [Concomitant]
     Active Substance: LANADELUMAB-FLYO
     Indication: Hereditary angioedema
     Route: 058
     Dates: start: 20231109
  90. TAKHZYRO [Concomitant]
     Active Substance: LANADELUMAB-FLYO
     Indication: Prophylaxis

REACTIONS (51)
  - Hereditary angioedema [Recovered/Resolved]
  - Puncture site pain [Recovered/Resolved]
  - Hereditary angioedema [Recovered/Resolved]
  - Hereditary angioedema [Recovered/Resolved]
  - Hereditary angioedema [Recovered/Resolved]
  - Hereditary angioedema [Recovered/Resolved]
  - Hereditary angioedema [Recovered/Resolved]
  - Hereditary angioedema [Recovered/Resolved]
  - Hereditary angioedema [Recovered/Resolved]
  - Hereditary angioedema [Recovered/Resolved]
  - Swollen tongue [Recovered/Resolved]
  - Urinary retention [Recovered/Resolved]
  - Dysphonia [Recovered/Resolved]
  - Eyelid oedema [Recovered/Resolved]
  - Lip oedema [Recovered/Resolved]
  - Tongue oedema [Recovered/Resolved]
  - Dyspnoea [Recovered/Resolved]
  - Eyelid oedema [Recovered/Resolved]
  - Lip swelling [Recovered/Resolved]
  - Swollen tongue [Recovered/Resolved]
  - Cough [Recovered/Resolved]
  - Abdominal distension [Recovered/Resolved]
  - Oropharyngeal pain [Recovered/Resolved]
  - Abdominal distension [Recovered/Resolved]
  - Lip swelling [Recovered/Resolved]
  - Swelling of eyelid [Recovered/Resolved]
  - Eyelid oedema [Recovered/Resolved]
  - Lip swelling [Recovered/Resolved]
  - Swollen tongue [Recovered/Resolved]
  - Cough [Recovered/Resolved]
  - Abdominal distension [Recovered/Resolved]
  - Vulvovaginal swelling [Recovered/Resolved]
  - Swollen tongue [Recovered/Resolved]
  - Lip swelling [Recovered/Resolved]
  - Vulvovaginal pain [Recovered/Resolved]
  - Glossodynia [Recovered/Resolved]
  - Eyelid oedema [Recovered/Resolved]
  - Vulvovaginal pain [Recovered/Resolved]
  - Paraesthesia oral [Recovered/Resolved]
  - Swollen tongue [Recovered/Resolved]
  - Eyelid oedema [Recovered/Resolved]
  - Dysphonia [Recovered/Resolved]
  - Cough [Recovered/Resolved]
  - Glossodynia [Recovered/Resolved]
  - Vulvovaginal pain [Recovered/Resolved]
  - Gastroenteritis [Recovered/Resolved]
  - Sciatica [Recovered/Resolved]
  - Off label use [Unknown]
  - Off label use [Unknown]
  - Intervertebral disc protrusion [Recovered/Resolved]
  - Back pain [Recovered/Resolved]

NARRATIVE: CASE EVENT DATE: 20231001
